FAERS Safety Report 5922092-0 (Version None)
Quarter: 2008Q4

REPORT INFORMATION
  Report Type: 
  Country: None (occurrence: None)
  Receive Date: 20081017
  Receipt Date: 20081014
  Transmission Date: 20090506
  Serious: Yes (Hospitalization, Other)
  Sender: FDA-Public Use
  Company Number: B0542203A

PATIENT
  Age: 79 Year
  Sex: Female

DRUGS (6)
  1. PAROXETINE HCL [Suspect]
     Indication: DEPRESSION
     Dosage: 20MG PER DAY
     Route: 048
  2. HIDROSALURETIL [Suspect]
     Route: 048
     Dates: start: 20071201, end: 20080127
  3. SUTRIL [Suspect]
     Dosage: 5MG PER DAY
     Route: 048
     Dates: start: 20070101, end: 20080127
  4. ASPIRIN [Suspect]
     Indication: CARDIAC FAILURE
     Dosage: 100MG PER DAY
     Route: 048
  5. COZAAR [Suspect]
     Dosage: 50MG PER DAY
     Route: 048
     Dates: end: 20080202
  6. VESICARE [Suspect]
     Indication: URINARY INCONTINENCE
     Dosage: 5MG PER DAY
     Route: 048
     Dates: end: 20080127

REACTIONS (2)
  - DRUG INTERACTION [None]
  - HYPONATRAEMIA [None]
